FAERS Safety Report 8477822 (Version 5)
Quarter: 2013Q1

REPORT INFORMATION
  Report Type: Spontaneous
  Country: US (occurrence: US)
  Receive Date: 20120327
  Receipt Date: 20130122
  Transmission Date: 20140127
  Serious: Yes (Hospitalization, Other)
  Sender: FDA-Public Use
  Company Number: US-PFIZER INC-2012076168

PATIENT
  Age: 72 Year
  Sex: Female
  Weight: 103 kg

DRUGS (27)
  1. PROCARDIA XL [Suspect]
     Indication: HYPERTENSION
     Dosage: 90 MG, 1X/DAY
     Route: 048
     Dates: start: 20120214, end: 20120313
  2. PROCARDIA XL [Suspect]
     Dosage: 90 MG, 2X/DAY
     Route: 048
     Dates: start: 20120314
  3. PROCARDIA XL [Suspect]
     Dosage: UNK
     Dates: start: 2012
  4. PROCARDIA XL [Suspect]
     Dosage: 150 MG, DAILY
     Dates: end: 201205
  5. AVAPRO [Concomitant]
     Dosage: 150 MG, TAKE 300 MG BY MOUTH DAILY
     Route: 048
  6. TENEX [Concomitant]
     Dosage: 1 MG, 1X/DAY
  7. TENEX [Concomitant]
     Dosage: 2 MG, DAILY
     Route: 048
  8. TENEX [Concomitant]
     Dosage: 1 MG TAB 3 TABLETS DAILY
     Route: 048
  9. TENEX [Concomitant]
     Dosage: 1 MG, 3X/DAY
     Route: 048
     Dates: start: 20120607
  10. COREG [Concomitant]
     Dosage: 25 MG, 2X/DAY
     Route: 048
  11. COREG [Concomitant]
     Dosage: 12.5 MG, 1X/DAY
     Route: 048
  12. LASIX [Concomitant]
     Dosage: 40 MG, 2X/DAY
     Route: 048
  13. LASIX [Concomitant]
     Dosage: 80 MG, 2X/DAY
     Route: 048
  14. CARDURA [Concomitant]
     Dosage: 2 MG, QHS
     Route: 048
  15. CARDURA [Concomitant]
     Dosage: 4 MG, UNK
     Route: 048
  16. TYLENOL [Concomitant]
     Dosage: 325 MG, TAKE 650 MG BY MOUTH EVERY 6 HOURS AS NEEDED
     Route: 048
  17. LANTUS [Concomitant]
     Dosage: 60 UNITS EVERY NIGHT
     Route: 058
  18. NEXIUM [Concomitant]
     Dosage: 40 MG, 1 CAPSULE BY MOUTH DAILY AS NEEDED
     Route: 048
  19. NEXIUM [Concomitant]
     Dosage: 40 MG, EVERY MORNING (BEFORE BREAKFAST)
     Route: 048
  20. VITAMIN D [Concomitant]
     Dosage: 1000 UNITS DAILY
     Route: 048
  21. PRAVACHOL [Concomitant]
     Dosage: 20 MG, 1X/DAY
     Route: 048
  22. ACETYLSALICYLIC ACID [Concomitant]
     Indication: PAIN
     Dosage: 325 MG, 1 TABLET EVERY 6 HOURS  PRN
     Route: 048
  23. ACETYLSALICYLIC ACID [Concomitant]
     Dosage: 325 MG, DAILY
     Route: 048
  24. COLACE [Concomitant]
     Dosage: 100 MG, 2X/DAY AS NEEDED
     Route: 048
  25. ADALAT CC [Concomitant]
     Dosage: 60 MG, UNK
  26. ECOTRIN [Concomitant]
     Dosage: 325 MG, 1X/DAY
     Route: 048
  27. ACETAMINOPHEN [Concomitant]
     Dosage: 650 MG, 1 TABLET, EVERY 6 HOURS AS NEEDED
     Route: 048

REACTIONS (7)
  - Renal artery stenosis [Unknown]
  - Hemiparesis [Unknown]
  - Hyperthyroidism [Unknown]
  - Arthropod bite [Recovering/Resolving]
  - Drug effect incomplete [Unknown]
  - Oedema peripheral [Recovered/Resolved]
  - Weight fluctuation [Not Recovered/Not Resolved]
